FAERS Safety Report 4689589-5 (Version None)
Quarter: 2005Q2

REPORT INFORMATION
  Report Type: 
  Country: None (occurrence: None)
  Receive Date: 20050613
  Receipt Date: 20050613
  Transmission Date: 20051028
  Serious: No
  Sender: FDA-Public Use
  Company Number: None

PATIENT
  Sex: Female

DRUGS (2)
  1. PHENTERMINE [Suspect]
  2. ADIPEX [Suspect]

REACTIONS (2)
  - CARDIAC DISORDER [None]
  - MITRAL VALVE REPLACEMENT [None]
